FAERS Safety Report 4350297-1 (Version None)
Quarter: 2004Q2

REPORT INFORMATION
  Report Type: 
  Country: None (occurrence: None)
  Receive Date: 20040429
  Receipt Date: 20030626
  Transmission Date: 20050107
  Serious: Yes (Life-Threatening, Hospitalization)
  Sender: FDA-Public Use
  Company Number: NL-MERCK-0306NLD00024

PATIENT
  Age: 50 Year
  Sex: Male

DRUGS (5)
  1. FOLIC ACID [Concomitant]
     Route: 065
     Dates: start: 20030317
  2. FOLIC ACID [Concomitant]
     Route: 065
     Dates: start: 20030317
  3. METHOTREXATE [Suspect]
     Route: 065
     Dates: start: 20030317, end: 20030331
  4. METHOTREXATE [Suspect]
     Route: 065
     Dates: start: 20030401, end: 20030605
  5. VIOXX [Suspect]
     Route: 048
     Dates: start: 20020626, end: 20030524

REACTIONS (4)
  - DIZZINESS [None]
  - DRUG INTERACTION [None]
  - HYPERTENSION [None]
  - SYNCOPE [None]
